FAERS Safety Report 13054281 (Version 3)
Quarter: 2017Q1

REPORT INFORMATION
  Report Type: Spontaneous
  Country: DE (occurrence: DE)
  Receive Date: 20161222
  Receipt Date: 20170202
  Transmission Date: 20170428
  Serious: Yes (Hospitalization, Other)
  Sender: FDA-Public Use
  Company Number: DE-009507513-1612DEU010968

PATIENT
  Age: 49 Year
  Sex: Female

DRUGS (7)
  1. TEMODAL [Suspect]
     Active Substance: TEMOZOLOMIDE
     Indication: GLIOBLASTOMA
     Dosage: 75 MG/M2, (ALSO REPORTED AS130 MG, QD)
     Route: 048
     Dates: start: 201611, end: 20161214
  2. DEXAMETHASONE. [Concomitant]
     Active Substance: DEXAMETHASONE
  3. TAVOR (LORAZEPAM) [Concomitant]
     Active Substance: LORAZEPAM
  4. METOCLOPRAMIDE HYDROCHLORIDE. [Concomitant]
     Active Substance: METOCLOPRAMIDE HYDROCHLORIDE
  5. DIPIDOLOR [Concomitant]
     Active Substance: PIRITRAMIDE
  6. NOVALGIN (DIPYRONE) [Concomitant]
     Active Substance: DIPYRONE
  7. LYRICA [Concomitant]
     Active Substance: PREGABALIN

REACTIONS (12)
  - Lipase increased [Unknown]
  - Alanine aminotransferase increased [Unknown]
  - Urinary retention [Recovering/Resolving]
  - Gait disturbance [Not Recovered/Not Resolved]
  - Neoplasm progression [Not Recovered/Not Resolved]
  - Ataxia [Recovering/Resolving]
  - Back pain [Recovering/Resolving]
  - Dyspnoea [Recovering/Resolving]
  - Blood cholinesterase decreased [Unknown]
  - Sensory disturbance [Recovering/Resolving]
  - Paraesthesia [Recovering/Resolving]
  - Ovarian cyst [Unknown]

NARRATIVE: CASE EVENT DATE: 201612
